FAERS Safety Report 6409219-1 (Version None)
Quarter: 2009Q4

REPORT INFORMATION
  Report Type: 
  Country: None (occurrence: None)
  Receive Date: 20091021
  Receipt Date: 20091016
  Transmission Date: 20100525
  Serious: Yes (Death)
  Sender: FDA-Public Use
  Company Number: JP-AVENTIS-200912868JP

PATIENT
  Age: 37 Year
  Sex: Male

DRUGS (2)
  1. AMARYL [Suspect]
     Route: 048
  2. AMARYL [Suspect]
     Dosage: DOSE: 23 TABLETS
     Route: 048

REACTIONS (2)
  - DEATH [None]
  - INTENTIONAL OVERDOSE [None]
